FAERS Safety Report 8695575 (Version 3)
Quarter: 2012Q4

REPORT INFORMATION
  Report Type: 
  Country: US (occurrence: US)
  Receive Date: 20120731
  Receipt Date: 20120905
  Transmission Date: 20130627
  Serious: Yes (Other)
  Sender: FDA-Public Use
  Company Number: US-PFIZER INC-2012182008

PATIENT
  Age: 79 Year
  Sex: Female
  Weight: 77 kg

DRUGS (16)
  1. LYRICA [Suspect]
     Indication: NEUROPATHY PERIPHERAL
     Dosage: 100 mg, 2x/day
     Route: 048
     Dates: start: 201203, end: 2012
  2. LYRICA [Suspect]
     Dosage: 50 mg, UNK
     Dates: start: 2012, end: 201207
  3. ACETYLSALICYLIC ACID [Concomitant]
     Dosage: 81 mg, alternate day
  4. CALCIUM [Concomitant]
     Dosage: UNK, as needed
  5. FISH OIL [Concomitant]
     Dosage: 1000 mg, daily
  6. VITAMIN B3 (NICOTINIC ACID AMIDE) [Concomitant]
     Dosage: UNK
  7. LORATADINE [Concomitant]
     Dosage: 10 mg, UNK
  8. HYDROCHLOROTHIAZIDE [Concomitant]
     Dosage: 25 mg, daily
  9. LEVOXYL [Concomitant]
     Dosage: 88 ug, UNK
  10. TRIGLYCERIDES [Concomitant]
     Indication: LIPID METABOLISM DISORDER
     Dosage: UNK, 3 tbsp daily
  11. METFORMIN [Concomitant]
     Dosage: 500 mg, 2x/day
  12. MULTIVITAMINS [Concomitant]
     Dosage: UNK
  13. LIPASE [Concomitant]
     Indication: DYSPEPSIA
     Dosage: UNK
  14. FAMOTIDINE [Concomitant]
     Dosage: UNK
  15. RECLAST [Concomitant]
     Dosage: 5 mg, yearly
  16. VITAMIN B12 [Concomitant]
     Dosage: 1000 ug, monthly

REACTIONS (9)
  - Intervertebral disc disorder [Unknown]
  - Fall [Unknown]
  - Peroneal nerve palsy [Unknown]
  - Paraesthesia [Unknown]
  - Hypoaesthesia [Unknown]
  - Pain [Unknown]
  - Insomnia [Unknown]
  - Drug ineffective [Unknown]
  - Gait disturbance [Unknown]
